FAERS Safety Report 19665338 (Version 4)
Quarter: 2022Q1

REPORT INFORMATION
  Report Type: Report from Study
  Country: US (occurrence: US)
  Receive Date: 20210805
  Receipt Date: 20220317
  Transmission Date: 20220423
  Serious: Yes (Other)
  Sender: FDA-Public Use
  Company Number: NVSC2021US176181

PATIENT
  Sex: Male

DRUGS (2)
  1. ENTRESTO [Suspect]
     Active Substance: SACUBITRIL\VALSARTAN
     Indication: Product used for unknown indication
     Dosage: 100 MG (49/51MG), UNKNOWN
     Route: 065
  2. ENTRESTO [Suspect]
     Active Substance: SACUBITRIL\VALSARTAN
     Dosage: 0.5 DF, (CUTTING 49/51 MG TO 24/26MG)
     Route: 065

REACTIONS (4)
  - Ejection fraction decreased [Unknown]
  - Fluid imbalance [Unknown]
  - Weight decreased [Unknown]
  - Wrong technique in product usage process [Unknown]
